FAERS Safety Report 8797827 (Version 7)
Quarter: 2013Q1

REPORT INFORMATION
  Report Type: Report from Study
  Country: FR (occurrence: FR)
  Receive Date: 20120919
  Receipt Date: 20130205
  Transmission Date: 20140127
  Serious: Yes (Death, Life-Threatening, Hospitalization)
  Sender: FDA-Public Use
  Company Number: FR-CELGENEUS-056-00000-12081993

PATIENT
  Age: 79 Year
  Sex: Male
  Weight: 65 kg

DRUGS (11)
  1. VIDAZA [Suspect]
     Indication: MYELODYSPLASTIC SYNDROME
     Route: 058
     Dates: start: 20120806, end: 20120811
  2. VIDAZA [Suspect]
     Route: 058
     Dates: start: 20120903, end: 20120905
  3. VIDAZA [Suspect]
     Route: 058
     Dates: start: 20120806, end: 20120811
  4. DANATROL [Concomitant]
     Indication: THROMBOCYTOPENIA
     Route: 048
     Dates: start: 20080611
  5. INEXIUM [Concomitant]
     Indication: HYPERTENSION
     Route: 048
     Dates: start: 2000
  6. ALTEIS [Concomitant]
     Indication: HYPERTENSION
     Route: 048
     Dates: start: 2010
  7. TRINITRINE [Concomitant]
     Indication: CHEST PAIN
     Route: 065
  8. ATARAX [Concomitant]
     Indication: PRODUCT USED FOR UNKNOWN INDICATION
     Route: 065
  9. GAVISCON [Concomitant]
     Indication: PRODUCT USED FOR UNKNOWN INDICATION
     Route: 065
  10. EXACTYL [Concomitant]
     Indication: PRODUCT USED FOR UNKNOWN INDICATION
     Dosage: 1 VIAL/DAY
     Route: 065
  11. KALEORID [Concomitant]
     Indication: PRODUCT USED FOR UNKNOWN INDICATION
     Dosage: 2000
     Route: 065

REACTIONS (3)
  - Cerebral haemorrhage [Fatal]
  - Acute pulmonary oedema [Recovered/Resolved]
  - Rectal haemorrhage [Recovered/Resolved]
